FAERS Safety Report 18644308 (Version 1)
Quarter: 2020Q4

REPORT INFORMATION
  Report Type: Spontaneous
  Country: DK (occurrence: DK)
  Receive Date: 20201221
  Receipt Date: 20201221
  Transmission Date: 20210114
  Serious: Yes (Life-Threatening, Hospitalization)
  Sender: FDA-Public Use
  Company Number: DK-ASTRAZENECA-2020SF68894

PATIENT
  Sex: Female
  Weight: 64 kg

DRUGS (7)
  1. MAREVAN [Concomitant]
     Active Substance: WARFARIN SODIUM
     Indication: ATRIAL FIBRILLATION
     Dosage: DOSAGE: PER WRITTEN INSTRUCTIONS STRENGTH: 2,5 MG
     Route: 048
     Dates: start: 20181126
  2. COZAAR [Concomitant]
     Active Substance: LOSARTAN POTASSIUM
     Indication: HYPERTENSION
     Dosage: STRENGTH: 100 MG
     Route: 048
     Dates: start: 20140115
  3. FORXIGA [Suspect]
     Active Substance: DAPAGLIFLOZIN
     Indication: TYPE 2 DIABETES MELLITUS
     Dosage: STRENGTH: 5 MG
     Route: 048
     Dates: start: 20201029, end: 20201108
  4. HJERTEMAGNYL [Concomitant]
     Indication: THROMBOSIS PROPHYLAXIS
     Dosage: STRENGTH: 75 MG
     Route: 048
     Dates: start: 20131220
  5. VIBEDEN [Concomitant]
     Active Substance: HYDROXOCOBALAMIN
     Indication: VITAMIN B12 DEFICIENCY
     Dosage: DOSAGE: PER WRITTEN INSTRUCTION STRENGTH: 1 MG/ML
     Route: 030
     Dates: start: 20170706
  6. ELTROXIN [Concomitant]
     Active Substance: LEVOTHYROXINE
     Indication: HYPOTHYROIDISM
     Dosage: STRENGTH: 100 ??G100UG/INHAL DAILY
     Route: 048
     Dates: start: 20131220
  7. FURIX [Concomitant]
     Indication: DIURETIC THERAPY
     Dosage: STRENGTH: 40 MG
     Route: 048
     Dates: start: 20170601

REACTIONS (6)
  - Nausea [Unknown]
  - Ketoacidosis [Recovered/Resolved]
  - Lactic acidosis [Recovered/Resolved]
  - Presyncope [Unknown]
  - Bradycardia [Recovered/Resolved]
  - Vomiting [Unknown]

NARRATIVE: CASE EVENT DATE: 20201106
